FAERS Safety Report 7781913-X (Version None)
Quarter: 2011Q3

REPORT INFORMATION
  Report Type: 
  Country: None (occurrence: None)
  Receive Date: 20110927
  Receipt Date: 20110127
  Transmission Date: 20111222
  Serious: Yes (Other)
  Sender: FDA-Public Use
  Company Number: US-BAYER-201034733NA

PATIENT
  Age: 39 Year
  Sex: Female
  Weight: 64.399 kg

DRUGS (5)
  1. GUAIFENEX PSE [Concomitant]
     Dosage: 600 / 120 MG
     Dates: start: 20070801
  2. HYDROCODONE BITARTRATE AND ACETAMINOPHEN [Concomitant]
     Dosage: 7.5/500 MG
     Dates: start: 20080101
  3. NSAID'S [Concomitant]
  4. YAZ [Suspect]
     Dosage: UNK
     Route: 048
     Dates: start: 20060101, end: 20080101
  5. FLUCONAZOLE [Concomitant]
     Dosage: 150 MG, UNK
     Dates: start: 20070601

REACTIONS (3)
  - CHOLECYSTITIS CHRONIC [None]
  - INJURY [None]
  - GALLBLADDER DISORDER [None]
